FAERS Safety Report 20952914 (Version 1)
Quarter: 2022Q2

REPORT INFORMATION
  Report Type: Spontaneous
  Country: BR (occurrence: BR)
  Receive Date: 20220613
  Receipt Date: 20220613
  Transmission Date: 20220721
  Serious: Yes (Disabling, Other)
  Sender: FDA-Public Use
  Company Number: BR-NAPPMUNDI-GBR-2022-0098777

PATIENT
  Age: 45 Year
  Sex: Female
  Weight: 42 kg

DRUGS (3)
  1. BUPRENORPHINE [Suspect]
     Active Substance: BUPRENORPHINE
     Indication: Back pain
     Dosage: 1 PATCH, WEEKLY (STRENGTH 20MG)
     Route: 062
     Dates: start: 20220530
  2. BUPRENORPHINE [Suspect]
     Active Substance: BUPRENORPHINE
     Dosage: 1 PATCH, WEEKLY (STRENGTH 10MG)
     Route: 062
     Dates: start: 202201
  3. DIPYRONE [Concomitant]
     Active Substance: DIPYRONE
     Indication: Pain
     Dosage: 1 GRAM, DAILY
     Route: 048

REACTIONS (4)
  - Bedridden [Not Recovered/Not Resolved]
  - Adverse event [Unknown]
  - Therapeutic product effect delayed [Unknown]
  - Therapy change [Unknown]
